FAERS Safety Report 8022825-6 (Version None)
Quarter: 2012Q1

REPORT INFORMATION
  Report Type: 
  Country: None (occurrence: None)
  Receive Date: 20120104
  Receipt Date: 20111228
  Transmission Date: 20120608
  Serious: Yes (Hospitalization, Disabling)
  Sender: FDA-Public Use
  Company Number: US-MERCK-1103USA02110

PATIENT
  Age: 57 Year
  Sex: Female
  Weight: 65 kg

DRUGS (17)
  1. TAMOXIFEN CITRATE [Concomitant]
     Route: 065
     Dates: start: 20000322, end: 20050516
  2. FOSAMAX [Suspect]
     Route: 048
     Dates: start: 20080701, end: 20081101
  3. VITAMIN E [Concomitant]
     Route: 065
     Dates: start: 20010101, end: 20070101
  4. FOSAMAX [Suspect]
     Indication: OSTEOPENIA
     Route: 048
     Dates: start: 20010613, end: 20061030
  5. BONIVA [Suspect]
     Route: 048
     Dates: start: 20081101, end: 20100301
  6. CALTRATE + D [Concomitant]
     Route: 065
     Dates: start: 20010101, end: 20070101
  7. FOLIC ACID [Concomitant]
     Route: 065
     Dates: start: 20010101, end: 20070101
  8. ALENDRONATE SODIUM [Suspect]
     Indication: OSTEOPENIA
     Route: 048
     Dates: start: 20080701, end: 20081101
  9. GERITOL COMPLETE [Concomitant]
     Route: 065
     Dates: start: 20001201
  10. BONIVA [Suspect]
     Indication: OSTEOPENIA
     Route: 048
     Dates: start: 20061031, end: 20080601
  11. FOSAMAX [Suspect]
     Route: 048
     Dates: start: 20080701, end: 20081101
  12. CYANOCOBALAMIN [Concomitant]
     Route: 065
     Dates: start: 20010101
  13. PYRIDOXINE [Concomitant]
     Route: 065
     Dates: start: 20010101, end: 20070101
  14. ASCORBIC ACID [Concomitant]
     Route: 065
     Dates: start: 20011201
  15. ESTROGENS (UNSPECIFIED) [Concomitant]
     Route: 065
     Dates: start: 20000501
  16. FOSAMAX [Suspect]
     Indication: OSTEOPOROSIS
     Route: 048
     Dates: start: 20010613, end: 20061030
  17. VITAMIN D (UNSPECIFIED) [Concomitant]
     Route: 065
     Dates: start: 20010101

REACTIONS (48)
  - NAIL AVULSION [None]
  - MUCOSAL INFLAMMATION [None]
  - HYPERKERATOSIS [None]
  - EXOSTOSIS [None]
  - GLOSSODYNIA [None]
  - SCOLIOSIS [None]
  - TOOTH FRACTURE [None]
  - LOCALISED INFECTION [None]
  - FEMUR FRACTURE [None]
  - LOW TURNOVER OSTEOPATHY [None]
  - ABDOMINAL DISTENSION [None]
  - BONE LOSS [None]
  - BURSITIS [None]
  - DYSPEPSIA [None]
  - RIB FRACTURE [None]
  - UPPER RESPIRATORY TRACT INFECTION [None]
  - ORAL CANDIDIASIS [None]
  - LUMBAR RADICULOPATHY [None]
  - JOINT INJURY [None]
  - ANAEMIA [None]
  - CHEST PAIN [None]
  - MUSCLE CONTRACTURE [None]
  - SENSITIVITY OF TEETH [None]
  - OSTEOPENIA [None]
  - TENDONITIS [None]
  - OSTEONECROSIS OF JAW [None]
  - BACK INJURY [None]
  - BREAST DISORDER [None]
  - ONYCHOMYCOSIS [None]
  - MYALGIA [None]
  - LUNG NEOPLASM [None]
  - FOOT FRACTURE [None]
  - DENTAL CARIES [None]
  - FALL [None]
  - ASPARTATE AMINOTRANSFERASE INCREASED [None]
  - STRESS FRACTURE [None]
  - PAIN IN EXTREMITY [None]
  - ORAL DISORDER [None]
  - BLOOD LACTATE DEHYDROGENASE INCREASED [None]
  - BRONCHITIS [None]
  - BUNION [None]
  - PYOGENIC GRANULOMA [None]
  - WHITE BLOOD CELL COUNT DECREASED [None]
  - VITAMIN D DEFICIENCY [None]
  - SYNOVITIS [None]
  - GASTROOESOPHAGEAL REFLUX DISEASE [None]
  - OSTEOARTHRITIS [None]
  - HYPERCHOLESTEROLAEMIA [None]
